FAERS Safety Report 19981613 (Version 2)
Quarter: 2022Q4

REPORT INFORMATION
  Report Type: Spontaneous
  Country: US (occurrence: US)
  Receive Date: 20211021
  Receipt Date: 20221017
  Transmission Date: 20230113
  Serious: No
  Sender: FDA-Public Use
  Company Number: US-SA-SAC20211016000236

PATIENT
  Age: 53 Year
  Sex: Male

DRUGS (8)
  1. DUPIXENT [Suspect]
     Active Substance: DUPILUMAB
     Indication: Psoriasis
     Dosage: 300 MG, QOW
     Route: 058
     Dates: start: 20210701, end: 2021
  2. HUMIRA [Suspect]
     Active Substance: ADALIMUMAB
     Dosage: CF 40MG/0.4ML
  3. ATORVASTATIN [Concomitant]
     Active Substance: ATORVASTATIN
  4. EXFORGE [Concomitant]
     Active Substance: AMLODIPINE BESYLATE\VALSARTAN
     Dosage: UNK
  5. PANTOPRAZOLE [Concomitant]
     Active Substance: PANTOPRAZOLE
     Dosage: UNK
  6. DOXYCYCLINE [Concomitant]
     Active Substance: DOXYCYCLINE
  7. OLMESARTAN [Concomitant]
     Active Substance: OLMESARTAN
  8. PREDNISONE [Concomitant]
     Active Substance: PREDNISONE

REACTIONS (6)
  - Sinusitis [Unknown]
  - Pyrexia [Unknown]
  - Hyperhidrosis [Unknown]
  - Immune system disorder [Not Recovered/Not Resolved]
  - Skin reaction [Not Recovered/Not Resolved]
  - Product use in unapproved indication [Unknown]

NARRATIVE: CASE EVENT DATE: 20210101
